FAERS Safety Report 9079389 (Version 1)
Quarter: 2013Q1

REPORT INFORMATION
  Report Type: Spontaneous
  Country: FR (occurrence: FR)
  Receive Date: 20130130
  Receipt Date: 20130130
  Transmission Date: 20140127
  Serious: Yes (Death, Hospitalization, Other)
  Sender: FDA-Public Use
  Company Number: FR-CUBIST PHARMACEUTICAL, INC.-2012S1000241

PATIENT
  Age: 12 None
  Sex: Female
  Weight: 40.5 kg

DRUGS (27)
  1. CUBICIN [Suspect]
     Indication: SEPSIS
     Dosage: UNK UNK, UNK
     Route: 042
     Dates: start: 20120110
  2. METHOTREXATE [Suspect]
     Indication: PRODUCT USED FOR UNKNOWN INDICATION
     Dosage: 17 G, UNK
     Route: 042
     Dates: start: 20111021
  3. VP-16 [Suspect]
     Indication: PRODUCT USED FOR UNKNOWN INDICATION
     Dosage: 110 MG, QID
     Route: 042
     Dates: start: 20111116
  4. ZOLEDRONATE [Suspect]
     Indication: BONE SARCOMA
     Dosage: 2.8 MG, BID
     Route: 042
     Dates: start: 20111024
  5. IFOSFAMIDE [Suspect]
     Indication: PRODUCT USED FOR UNKNOWN INDICATION
     Dosage: 4250 MG, UNK
     Route: 042
     Dates: start: 20111116
  6. ENDOXAN [Suspect]
     Indication: PRODUCT USED FOR UNKNOWN INDICATION
     Dosage: 2750 MG, BID
     Route: 065
     Dates: start: 20111129
  7. ZOPHREN                            /00955301/ [Concomitant]
     Indication: PRODUCT USED FOR UNKNOWN INDICATION
     Dosage: UNK UNK, UNK
     Route: 065
  8. SKENAN [Concomitant]
     Indication: PRODUCT USED FOR UNKNOWN INDICATION
     Dosage: UNK UNK, UNK
     Route: 065
     Dates: start: 20111101
  9. ATARAX /00595201/ [Concomitant]
     Indication: PRODUCT USED FOR UNKNOWN INDICATION
     Dosage: UNK UNK, UNK
     Route: 065
  10. UROMITEXAN [Concomitant]
     Indication: PRODUCT USED FOR UNKNOWN INDICATION
     Dosage: UNK UNK, UNK
     Route: 065
  11. PERFALGAN [Concomitant]
     Indication: PRODUCT USED FOR UNKNOWN INDICATION
     Dosage: UNK UNK, UNK
     Route: 065
  12. AZANTAC [Concomitant]
     Indication: PRODUCT USED FOR UNKNOWN INDICATION
     Dosage: UNK UNK, UNK
     Route: 065
     Dates: start: 20111013
  13. TAZOCILLINE [Concomitant]
     Indication: PRODUCT USED FOR UNKNOWN INDICATION
     Dosage: UNK UNK, UNK
     Route: 065
     Dates: end: 20120105
  14. ALL OTHER THERAPEUTIC PRODUCTS (AIKIN) [Concomitant]
     Indication: PRODUCT USED FOR UNKNOWN INDICATION
     Dosage: UNK UNK, UNK
     Route: 065
  15. TARGOCID [Concomitant]
     Indication: PRODUCT USED FOR UNKNOWN INDICATION
     Dosage: UNK UNK, UNK
     Route: 065
     Dates: end: 20120110
  16. VANCOMYCIN [Concomitant]
     Indication: PRODUCT USED FOR UNKNOWN INDICATION
     Dosage: UNK UNK, UNK
     Route: 065
  17. GENTAMICIN [Concomitant]
     Indication: PRODUCT USED FOR UNKNOWN INDICATION
     Dosage: UNK UNK, UNK
     Route: 065
  18. LURIDE [Concomitant]
     Indication: PRODUCT USED FOR UNKNOWN INDICATION
     Dosage: UNK UNK, UNK
     Route: 065
  19. ZYVOXID [Concomitant]
     Indication: PRODUCT USED FOR UNKNOWN INDICATION
     Dosage: UNK UNK, UNK
     Route: 065
  20. PLITICAN [Concomitant]
     Indication: PRODUCT USED FOR UNKNOWN INDICATION
     Dosage: UNK UNK, UNK
     Route: 065
  21. LEDERFOLINE [Concomitant]
     Indication: PRODUCT USED FOR UNKNOWN INDICATION
     Dosage: UNK UNK, UNK
     Route: 065
  22. CALCIUM [Concomitant]
     Indication: PRODUCT USED FOR UNKNOWN INDICATION
     Dosage: UNK UNK, UNK
     Route: 065
  23. PHOSPHORUS [Concomitant]
     Indication: PRODUCT USED FOR UNKNOWN INDICATION
     Dosage: UNK UNK, UNK
     Route: 065
  24. STEROGYL                           /00107901/ [Concomitant]
     Indication: PRODUCT USED FOR UNKNOWN INDICATION
     Dosage: UNK UNK, UNK
     Route: 065
     Dates: start: 201110
  25. VITAMIN D NOS [Concomitant]
     Indication: PRODUCT USED FOR UNKNOWN INDICATION
     Dosage: UNK UNK, UNK
     Route: 065
  26. CISPLATINE [Concomitant]
     Indication: PRODUCT USED FOR UNKNOWN INDICATION
     Dosage: UNK
     Dates: end: 20120426
  27. ADRIAMYCIN [Concomitant]
     Indication: PRODUCT USED FOR UNKNOWN INDICATION
     Dosage: UNK UNK, UNK
     Dates: end: 20120522

REACTIONS (4)
  - Toxicity to various agents [Recovered/Resolved]
  - Sepsis [Recovered/Resolved]
  - Drug interaction [Unknown]
  - Hypocalcaemia [Recovered/Resolved]
